FAERS Safety Report 8393580-5 (Version None)
Quarter: 2012Q2

REPORT INFORMATION
  Report Type: 
  Country: None (occurrence: None)
  Receive Date: 20120530
  Receipt Date: 20120516
  Transmission Date: 20120825
  Serious: Yes (Other)
  Sender: FDA-Public Use
  Company Number: ES-AMGEN-ESPSP2012029192

PATIENT
  Age: 64 Year
  Sex: Female

DRUGS (1)
  1. ENBREL [Suspect]
     Indication: RHEUMATOID ARTHRITIS
     Dosage: 50 MG, 1X/DAY
     Route: 065
     Dates: start: 20091020, end: 20111110

REACTIONS (2)
  - UVEITIS [None]
  - INAPPROPRIATE SCHEDULE OF DRUG ADMINISTRATION [None]
